FAERS Safety Report 8624841-X (Version None)
Quarter: 2012Q3

REPORT INFORMATION
  Report Type: 
  Country: None (occurrence: None)
  Receive Date: 20120827
  Receipt Date: 20120821
  Transmission Date: 20120928
  Serious: Yes (Other)
  Sender: FDA-Public Use
  Company Number: DE-UCBSA-063980

PATIENT
  Age: 87 Year
  Sex: Female

DRUGS (5)
  1. PLAVIX [Concomitant]
  2. KEPPRA [Suspect]
     Dates: start: 20120101
  3. KEPPRA [Suspect]
     Dosage: STRENGHT: 250 MG
     Dates: start: 20120614, end: 20120101
  4. LERCANIDIPINE [Concomitant]
  5. METOPROLOL TARTRATE [Concomitant]

REACTIONS (2)
  - BLOOD URINE [None]
  - INFLAMMATION [None]
